FAERS Safety Report 12442494 (Version 3)
Quarter: 2017Q1

REPORT INFORMATION
  Report Type: Spontaneous
  Country: FR (occurrence: FR)
  Receive Date: 20160607
  Receipt Date: 20170227
  Transmission Date: 20170428
  Serious: Yes (Hospitalization)
  Sender: FDA-Public Use
  Company Number: FR-PFIZER INC-2016287280

PATIENT
  Age: 84 Year
  Sex: Female

DRUGS (7)
  1. LASILIX /00032601/ [Concomitant]
     Active Substance: FUROSEMIDE
     Dosage: UNK
  2. RAMIPRIL. [Suspect]
     Active Substance: RAMIPRIL
     Indication: CARDIOMYOPATHY
     Dosage: UNK
     Route: 048
     Dates: end: 20140723
  3. CORDARONE [Suspect]
     Active Substance: AMIODARONE HYDROCHLORIDE
     Indication: CARDIOMYOPATHY
     Dosage: UNK
     Route: 048
     Dates: end: 20140723
  4. CARDENSIEL [Suspect]
     Active Substance: BISOPROLOL FUMARATE
     Indication: CARDIOMYOPATHY
     Dosage: UNK
     Route: 048
     Dates: end: 20140723
  5. NORSET [Concomitant]
     Active Substance: MIRTAZAPINE
     Dosage: UNK
  6. ALDACTONE [Suspect]
     Active Substance: SPIRONOLACTONE
     Indication: CARDIOMYOPATHY
     Dosage: UNK
     Route: 048
     Dates: end: 20140723
  7. PREVISCAN /00789001/ [Concomitant]
     Active Substance: FLUINDIONE
     Dosage: UNK

REACTIONS (4)
  - Electrocardiogram QT prolonged [Unknown]
  - Acute kidney injury [Unknown]
  - Hyperkalaemia [Unknown]
  - Sinus node dysfunction [Recovered/Resolved]

NARRATIVE: CASE EVENT DATE: 20140723
